FAERS Safety Report 6640859-0 (Version None)
Quarter: 2010Q1

REPORT INFORMATION
  Report Type: 
  Country: None (occurrence: None)
  Receive Date: 20100318
  Receipt Date: 20100305
  Transmission Date: 20100710
  Serious: Yes (Hospitalization)
  Sender: FDA-Public Use
  Company Number: DE-AMGEN-US398351

PATIENT
  Age: 69 Year
  Sex: Female

DRUGS (2)
  1. ENBREL [Suspect]
     Indication: RHEUMATOID ARTHRITIS
     Route: 058
     Dates: start: 20091009, end: 20100201
  2. GLUCOCORTICOIDS [Concomitant]
     Dosage: 15 MG (FREQUENCY UNKNOWN)

REACTIONS (2)
  - HEPATIC ENZYME INCREASED [None]
  - SPINAL FRACTURE [None]
